FAERS Safety Report 10032644 (Version 1)
Quarter: 2014Q1

REPORT INFORMATION
  Report Type: Report from Study
  Country: US (occurrence: US)
  Receive Date: 20140324
  Receipt Date: 20140324
  Transmission Date: 20141002
  Serious: Yes (Other)
  Sender: FDA-Public Use
  Company Number: US-VIIV HEALTHCARE LIMITED-A1066306A

PATIENT
  Age: 40 Year
  Sex: Female

DRUGS (3)
  1. EPZICOM [Suspect]
     Indication: HIV INFECTION
     Dosage: 1TAB PER DAY
     Route: 048
     Dates: start: 20131112
  2. TRUVADA [Suspect]
     Indication: HIV INFECTION
     Dosage: 1U PER DAY
     Route: 048
     Dates: end: 20131112
  3. NEVIRAPINE [Suspect]
     Indication: HIV INFECTION
     Dosage: 400MG PER DAY
     Route: 048

REACTIONS (4)
  - Abortion spontaneous [Unknown]
  - Oligohydramnios [Unknown]
  - Disseminated tuberculosis [Unknown]
  - Exposure during pregnancy [Unknown]
